FAERS Safety Report 7382015-7 (Version None)
Quarter: 2011Q1

REPORT INFORMATION
  Report Type: 
  Country: None (occurrence: None)
  Receive Date: 20110329
  Receipt Date: 20110325
  Transmission Date: 20110831
  Serious: Yes (Other)
  Sender: FDA-Public Use
  Company Number: US-PFIZER INC-2010116261

PATIENT
  Sex: Female
  Weight: 78.458 kg

DRUGS (9)
  1. MONTELUKAST [Concomitant]
     Indication: HYPERSENSITIVITY
     Dosage: 10 MG, 1X/DAY
     Route: 048
  2. DIAZEPAM [Concomitant]
     Indication: ANXIETY
     Dosage: 5 MG, 4X/DAY
     Route: 048
  3. DARIFENACIN [Concomitant]
     Indication: BLADDER DISORDER
     Dosage: 15 MG, 1X/DAY
     Route: 048
  4. ASTHALIN [Concomitant]
     Indication: HYPERSENSITIVITY
     Dosage: UNK, 2X/DAY
     Route: 045
  5. LEXAPRO [Concomitant]
     Indication: ANXIETY
     Dosage: 30 MG, DAILY
  6. LYRICA [Suspect]
     Indication: FIBROMYALGIA
     Dosage: 75 MG, 2X/DAY
     Route: 048
     Dates: start: 20080701
  7. LYRICA [Suspect]
     Dosage: UNK
     Route: 048
     Dates: end: 20101201
  8. DIAZEPAM [Concomitant]
     Indication: STRESS
  9. WELLBUTRIN [Concomitant]
     Indication: ANXIETY
     Dosage: 150 MG, 2X/DAY
     Route: 048

REACTIONS (8)
  - PAIN [None]
  - ANXIETY [None]
  - FALL [None]
  - FEELING ABNORMAL [None]
  - MOVEMENT DISORDER [None]
  - GAIT DISTURBANCE [None]
  - JOINT SWELLING [None]
  - ABDOMINAL PAIN UPPER [None]
